FAERS Safety Report 16720774 (Version 1)
Quarter: 2019Q3

REPORT INFORMATION
  Report Type: Spontaneous
  Country: US (occurrence: US)
  Receive Date: 20190703
  Receipt Date: 20190703
  Transmission Date: 20191005
  Serious: No
  Sender: FDA-Public Use
  Company Number: None

PATIENT
  Sex: Female

DRUGS (4)
  1. RESET BIOSCIENCE BALANCE 300MG 99%+ NANO LIPOSOMAL ORGANIC HEMP CBD [Suspect]
     Active Substance: CANNABIDIOL\HERBALS
     Indication: INFLAMMATION
  2. RESET BIOSCIENCE BALANCE 300MG 99%+ NANO LIPOSOMAL ORGANIC HEMP CBD [Suspect]
     Active Substance: CANNABIDIOL\HERBALS
     Indication: STRESS
  3. RESET BIOSCIENCE BALANCE 300MG 99%+ NANO LIPOSOMAL ORGANIC HEMP CBD [Suspect]
     Active Substance: CANNABIDIOL\HERBALS
     Indication: ANXIETY
  4. RESET BIOSCIENCE BALANCE 300MG 99%+ NANO LIPOSOMAL ORGANIC HEMP CBD [Suspect]
     Active Substance: CANNABIDIOL\HERBALS
     Indication: PAIN

REACTIONS (1)
  - Product use complaint [None]
